FAERS Safety Report 21442747 (Version 1)
Quarter: 2022Q4

REPORT INFORMATION
  Report Type: Spontaneous
  Country: DE (occurrence: DE)
  Receive Date: 20221012
  Receipt Date: 20221012
  Transmission Date: 20230113
  Serious: Yes (Hospitalization)
  Sender: FDA-Public Use
  Company Number: None

PATIENT
  Age: 83 Year
  Sex: Female
  Weight: 83 kg

DRUGS (7)
  1. ATORVASTATIN [Concomitant]
     Active Substance: ATORVASTATIN
     Dosage: 10 MG, 0-0-1-0, TABLETS
  2. TORSEMIDE [Concomitant]
     Active Substance: TORSEMIDE
     Dosage: 10MG, 0.5-0-0-0, TABLETS
  3. Acetylsalicyls+#228;ure [Concomitant]
     Dosage: 100MG, 0-1-0-0, TABLETS
  4. VENLAFAXINE HYDROCHLORIDE [Interacting]
     Active Substance: VENLAFAXINE HYDROCHLORIDE
     Dosage: 150 MG, 1-0-0-0, PROLONGED-RELEASE TABLETS
  5. AMLODIPINE\OLMESARTAN [Concomitant]
     Active Substance: AMLODIPINE\OLMESARTAN
     Dosage: 10|40 MG, 1-0-0-0, TABLETS
  6. METFORMIN [Concomitant]
     Active Substance: METFORMIN HYDROCHLORIDE
     Dosage: 850 MG, 1-0-0-0, TABLETS
  7. MELPERONE [Interacting]
     Active Substance: MELPERONE
     Dosage: 25 MG, 1-1-1-0, TABLETS

REACTIONS (11)
  - Anxiety [Unknown]
  - Restlessness [Unknown]
  - Dementia [Unknown]
  - Pain [Unknown]
  - Memory impairment [Unknown]
  - Agitation [Unknown]
  - Confusional state [Unknown]
  - Depressed mood [Unknown]
  - Headache [Unknown]
  - Product preparation issue [Unknown]
  - Drug interaction [Unknown]
